FAERS Safety Report 17574617 (Version 2)
Quarter: 2020Q2

REPORT INFORMATION
  Report Type: Spontaneous
  Country: US (occurrence: US)
  Receive Date: 20200324
  Receipt Date: 20200507
  Transmission Date: 20200713
  Serious: No
  Sender: FDA-Public Use
  Company Number: US-SHIRE-US202010852

PATIENT
  Age: 48 Year
  Sex: Female

DRUGS (2)
  1. GATTEX [Suspect]
     Active Substance: TEDUGLUTIDE\WATER
     Dosage: 3.8 MILLIGRAM, 1X/DAY:QD
     Route: 058
     Dates: start: 20200328
  2. GATTEX [Suspect]
     Active Substance: TEDUGLUTIDE\WATER
     Indication: SHORT-BOWEL SYNDROME
     Dosage: 78.18 UNK
     Route: 058
     Dates: start: 20151109, end: 20200101

REACTIONS (3)
  - Headache [Unknown]
  - Vomiting [Unknown]
  - Product dose omission [Unknown]

NARRATIVE: CASE EVENT DATE: 20200101
